FAERS Safety Report 9796506 (Version 1)
Quarter: 2014Q1

REPORT INFORMATION
  Report Type: Report from Study
  Country: US (occurrence: US)
  Receive Date: 20140103
  Receipt Date: 20140103
  Transmission Date: 20141002
  Serious: Yes (Hospitalization)
  Sender: FDA-Public Use
  Company Number: US-ABBVIE-13P-163-1184571-00

PATIENT
  Age: 46 Year
  Sex: Female

DRUGS (24)
  1. HUMIRA [Suspect]
     Indication: PSORIASIS
     Dates: start: 201307
  2. FISH OIL [Concomitant]
     Indication: PRODUCT USED FOR UNKNOWN INDICATION
  3. STOOL SOFTENER [Concomitant]
     Indication: IRRITABLE BOWEL SYNDROME
  4. LEVOTHYROXINE [Concomitant]
     Indication: PRODUCT USED FOR UNKNOWN INDICATION
  5. OMEPRAZOLE [Concomitant]
     Indication: GASTROOESOPHAGEAL REFLUX DISEASE
  6. OMEPRAZOLE [Concomitant]
     Indication: HIATUS HERNIA
  7. PSEUDOEPHEDRINE [Concomitant]
     Indication: CHRONIC SINUSITIS
  8. ASA [Concomitant]
     Indication: PRODUCT USED FOR UNKNOWN INDICATION
  9. TOLTERODINE TARTRATE [Concomitant]
     Indication: INCONTINENCE
  10. CALCIUM [Concomitant]
     Indication: PRODUCT USED FOR UNKNOWN INDICATION
  11. CETRIZINE [Concomitant]
     Indication: HYPERSENSITIVITY
  12. POTASSIUM [Concomitant]
     Indication: PRODUCT USED FOR UNKNOWN INDICATION
     Dosage: IN AM
  13. VERAPAMIL [Concomitant]
     Indication: BLOOD PRESSURE
  14. VERAPAMIL [Concomitant]
     Indication: MIGRAINE
  15. SEROQUEL [Concomitant]
     Indication: DEPRESSION
  16. SEROQUEL [Concomitant]
     Indication: ANXIETY
  17. SEROQUEL [Concomitant]
     Indication: NIGHTMARE
  18. SEROQUEL [Concomitant]
     Indication: MOOD SWINGS
  19. VENLAFAXINE [Concomitant]
     Indication: DEPRESSION
     Dosage: IN AM
  20. TRAZODONE [Concomitant]
     Indication: INSOMNIA
     Dosage: HS
  21. GABAPENTIN [Concomitant]
     Indication: ARTHRALGIA
  22. HYDROXYZINE [Concomitant]
     Indication: ANXIETY
     Dosage: TWICE A DAY OR AS NEEDED
  23. HYDROXYZINE [Concomitant]
     Indication: PRURITUS
  24. VITAMIN D [Concomitant]
     Indication: PRODUCT USED FOR UNKNOWN INDICATION

REACTIONS (7)
  - Depression [Recovering/Resolving]
  - Tachyphrenia [Recovering/Resolving]
  - Hyperacusis [Recovering/Resolving]
  - Fall [Unknown]
  - Excoriation [Unknown]
  - Dyspnoea [Unknown]
  - Ligament sprain [Unknown]
